FAERS Safety Report 5667929-8 (Version None)
Quarter: 2008Q1

REPORT INFORMATION
  Report Type: 
  Country: None (occurrence: None)
  Receive Date: 20080315
  Receipt Date: 20080206
  Transmission Date: 20080703
  Serious: No
  Sender: FDA-Public Use
  Company Number: US-ABBOTT-08P-163-0437692-00

PATIENT
  Sex: Female
  Weight: 61.29 kg

DRUGS (5)
  1. HUMIRA [Suspect]
     Indication: RHEUMATOID ARTHRITIS
     Route: 058
     Dates: start: 20040105, end: 20071001
  2. ESOMEPRAZOLE MAGNESIUM [Concomitant]
     Indication: DRUG USE FOR UNKNOWN INDICATION
     Dosage: NOT REPORTED
  3. VALSARTAN [Concomitant]
     Indication: DRUG USE FOR UNKNOWN INDICATION
     Dosage: NOT REPORTED
  4. PREDNISONE [Concomitant]
     Indication: DRUG USE FOR UNKNOWN INDICATION
     Dosage: NOT REPORTED
  5. METHOTREXATE [Concomitant]
     Indication: DRUG USE FOR UNKNOWN INDICATION
     Dosage: NOT REPORTED

REACTIONS (2)
  - RASH PAPULAR [None]
  - RASH PRURITIC [None]
